FAERS Safety Report 13206642 (Version 2)
Quarter: 2018Q3

REPORT INFORMATION
  Report Type: Report from Study
  Country: US (occurrence: US)
  Receive Date: 20170209
  Receipt Date: 20180702
  Transmission Date: 20181010
  Serious: Yes (Other)
  Sender: FDA-Public Use
  Company Number: US-SA-2016SA218040

PATIENT
  Age: 76 Year
  Sex: Female
  Weight: 74.3 kg

DRUGS (7)
  1. ALIROCUMAB [Suspect]
     Active Substance: ALIROCUMAB
     Indication: TYPE IIA HYPERLIPIDAEMIA
     Dosage: 75 MG,QOW
     Route: 058
     Dates: start: 20161001
  2. PLAVIX [Suspect]
     Active Substance: CLOPIDOGREL BISULFATE
     Dosage: UNK UNK,UNK
     Route: 065
  3. ALIROCUMAB [Suspect]
     Active Substance: ALIROCUMAB
     Dosage: 75 MG,QOW
     Route: 058
  4. ALIROCUMAB PREFILLED PEN [Suspect]
     Active Substance: ALIROCUMAB
     Indication: TYPE V HYPERLIPIDAEMIA
     Dates: start: 20161001
  5. ALIROCUMAB PREFILLED PEN [Suspect]
     Active Substance: ALIROCUMAB
     Indication: TYPE IIA HYPERLIPIDAEMIA
     Dates: start: 20161001
  6. ALIROCUMAB [Suspect]
     Active Substance: ALIROCUMAB
     Indication: TYPE V HYPERLIPIDAEMIA
     Dosage: 75 MG,QOW
     Route: 058
     Dates: start: 20161001
  7. ALIROCUMAB [Suspect]
     Active Substance: ALIROCUMAB
     Dosage: 75 MG,QOW
     Route: 058

REACTIONS (8)
  - Device use issue [Unknown]
  - Device issue [Unknown]
  - Injection site bruising [Unknown]
  - Drug dose omission [Unknown]
  - Blood pressure increased [Not Recovered/Not Resolved]
  - Injection site pain [Recovered/Resolved]
  - Foot operation [Unknown]
  - Injury associated with device [Unknown]

NARRATIVE: CASE EVENT DATE: 20161125
